FAERS Safety Report 8183542-5 (Version None)
Quarter: 2012Q1

REPORT INFORMATION
  Report Type: 
  Country: None (occurrence: None)
  Receive Date: 20120130
  Receipt Date: 20111019
  Transmission Date: 20120608
  Serious: Yes (Other)
  Sender: FDA-Public Use
  Company Number: 043765

PATIENT
  Sex: Female

DRUGS (1)
  1. KEPPRA [Suspect]
     Indication: EPILEPSY
     Dosage: (MISSED DOSE ON 18/OCT/2011 ORAL)
     Route: 048
     Dates: start: 20110901

REACTIONS (2)
  - DRUG DOSE OMISSION [None]
  - CONVULSION [None]
